FAERS Safety Report 13691217 (Version 1)
Quarter: 2017Q2

REPORT INFORMATION
  Report Type: Spontaneous
  Country: US (occurrence: US)
  Receive Date: 20170626
  Receipt Date: 20170626
  Transmission Date: 20170830
  Serious: No
  Sender: FDA-Public Use
  Company Number: US-ROCHE-703358

PATIENT
  Age: 74 Year
  Sex: Male

DRUGS (2)
  1. SILVER SULFADIAZINE. [Suspect]
     Active Substance: SILVER SULFADIAZINE
     Indication: HERPES ZOSTER
     Dosage: FOR SEVEN TO TEN DAYS
     Route: 065
     Dates: start: 20090309, end: 20090329
  2. CELLCEPT [Suspect]
     Active Substance: MYCOPHENOLATE MOFETIL\MYCOPHENOLATE MOFETIL HYDROCHLORIDE
     Indication: MYASTHENIA GRAVIS
     Route: 061

REACTIONS (1)
  - Scar [Recovering/Resolving]

NARRATIVE: CASE EVENT DATE: 200903
